FAERS Safety Report 6391776-5 (Version None)
Quarter: 2009Q4

REPORT INFORMATION
  Report Type: 
  Country: None (occurrence: None)
  Receive Date: 20091007
  Receipt Date: 20090828
  Transmission Date: 20100525
  Serious: No
  Sender: FDA-Public Use
  Company Number: US-BAYER-200931466NA

PATIENT
  Age: 14 Year
  Sex: Female

DRUGS (1)
  1. YAZ [Suspect]
     Indication: ACNE
     Dosage: TOTAL DAILY DOSE: 1 DF
     Route: 048

REACTIONS (2)
  - ACNE [None]
  - MENSTRUATION IRREGULAR [None]
